FAERS Safety Report 8837572 (Version 1)
Quarter: 2012Q4

REPORT INFORMATION
  Report Type: 
  Country: US (occurrence: US)
  Receive Date: 20121012
  Receipt Date: 20121012
  Transmission Date: 20130627
  Serious: No
  Sender: FDA-Public Use
  Company Number: US-PFIZER INC-2012248033

PATIENT
  Age: 57 Year
  Sex: Male

DRUGS (15)
  1. SUTENT [Suspect]
     Indication: METASTATIC RENAL CELL CARCINOMA
     Dosage: 25 mg, UNK
     Dates: start: 20120910
  2. SUTENT [Suspect]
     Dosage: 50 mg, 1x/day for 28 days, off 14
  3. CLONIDINE [Suspect]
     Dosage: UNK
  4. LISINOPRIL [Concomitant]
     Dosage: UKN
  5. ZOLPIDEM [Concomitant]
  6. VERAPAMIL [Concomitant]
  7. LIVALO [Concomitant]
  8. PRILOSEC [Concomitant]
  9. LEVOTHYROXINE [Concomitant]
  10. LANTUS [Concomitant]
  11. HUMALOG [Concomitant]
  12. ALLOPURINOL [Concomitant]
  13. COLCHICINE [Concomitant]
  14. VITAMIN B12 [Concomitant]
  15. MULTIVIT [Concomitant]

REACTIONS (7)
  - Labile blood pressure [Unknown]
  - Hallucination [Unknown]
  - Fatigue [Unknown]
  - Dysgeusia [Unknown]
  - Glossodynia [Unknown]
  - Anorectal discomfort [Unknown]
  - Vertigo [Unknown]
